FAERS Safety Report 8620364-2 (Version None)
Quarter: 2012Q3

REPORT INFORMATION
  Report Type: 
  Country: None (occurrence: None)
  Receive Date: 20120824
  Receipt Date: 20120716
  Transmission Date: 20120928
  Serious: Yes (Other)
  Sender: FDA-Public Use
  Company Number: US-GLAXOSMITHKLINE-A0986388A

PATIENT
  Age: 62 Year
  Sex: Male
  Weight: 102.4 kg

DRUGS (27)
  1. GLUCOSAMINE + CHONDROITIN [Concomitant]
  2. ASTELIN [Concomitant]
     Route: 045
  3. SLOW-MAG [Concomitant]
  4. LYRICA [Concomitant]
     Indication: NEURALGIA
  5. GLIMEPIRIDE [Concomitant]
  6. LIDODERM [Concomitant]
     Indication: PAIN
  7. MORPHINE SULFATE [Concomitant]
  8. TYLENOL [Concomitant]
     Indication: PYREXIA
  9. RAMIPRIL [Concomitant]
     Indication: HYPERTENSION
  10. METFORMIN HCL [Concomitant]
     Indication: DIABETES MELLITUS
  11. BENADRYL [Concomitant]
  12. IBUPROFEN [Concomitant]
     Indication: PYREXIA
  13. VITAMIN D [Concomitant]
  14. VICTOZA [Concomitant]
     Indication: DIABETES MELLITUS
  15. FOLIC ACID [Concomitant]
  16. CRESTOR [Concomitant]
  17. MULTI-VITAMINS [Concomitant]
  18. AVAPRO [Concomitant]
  19. ASPIRIN [Concomitant]
  20. DEXILANT [Concomitant]
  21. VOTRIENT [Suspect]
     Indication: MALIGNANT SOFT TISSUE NEOPLASM
     Dosage: 800MG PER DAY
     Route: 048
     Dates: start: 20120606
  22. ASCORBIC ACID [Concomitant]
  23. SINGULAIR [Concomitant]
     Indication: MULTIPLE ALLERGIES
  24. ACTOS [Concomitant]
  25. FISH OIL [Concomitant]
  26. LATANOPROST [Concomitant]
     Indication: GLAUCOMA
  27. AZELASTINE HCL [Concomitant]

REACTIONS (11)
  - DRUG INEFFECTIVE [None]
  - METASTASES TO LUNG [None]
  - RENAL CYST [None]
  - INTERVERTEBRAL DISC DEGENERATION [None]
  - DYSPHONIA [None]
  - BRONCHIECTASIS [None]
  - DISEASE PROGRESSION [None]
  - ARTERIOSCLEROSIS CORONARY ARTERY [None]
  - EPISTAXIS [None]
  - DIVERTICULUM INTESTINAL [None]
  - MUCOSAL INFLAMMATION [None]
